FAERS Safety Report 13912451 (Version 2)
Quarter: 2017Q3

REPORT INFORMATION
  Report Type: Spontaneous
  Country: FR (occurrence: FR)
  Receive Date: 20170828
  Receipt Date: 20170906
  Transmission Date: 20171127
  Serious: Yes (Hospitalization)
  Sender: FDA-Public Use
  Company Number: FR-PFIZER INC-2017361767

PATIENT
  Age: 80 Year
  Sex: Male

DRUGS (10)
  1. AERIUS [Concomitant]
     Active Substance: DESLORATADINE
     Dosage: UNK
  2. UROREC [Concomitant]
     Active Substance: SILODOSIN
     Dosage: UNK
  3. TRANXENE T-TAB [Concomitant]
     Active Substance: CLORAZEPATE DIPOTASSIUM
     Dosage: UNK
     Dates: start: 20170612
  4. DAFALGAN [Concomitant]
     Active Substance: ACETAMINOPHEN
     Dosage: UNK
  5. IMOVANE [Concomitant]
     Active Substance: ZOPICLONE
     Dosage: UNK
     Dates: start: 20170612
  6. LODOZ [Concomitant]
     Active Substance: BISOPROLOL FUMARATE\HYDROCHLOROTHIAZIDE
     Dosage: UNK
  7. DALACINE [Suspect]
     Active Substance: CLINDAMYCIN HYDROCHLORIDE
     Indication: ERYSIPELAS
     Dosage: 600 MG, 3X/DAY
     Route: 048
     Dates: start: 20170627, end: 20170629
  8. AMOXICILLIN. [Suspect]
     Active Substance: AMOXICILLIN
     Indication: ERYSIPELAS
     Dosage: 2 G, 3X/DAY
     Route: 048
     Dates: start: 20170626, end: 20170630
  9. ZESTORETIC [Concomitant]
     Active Substance: HYDROCHLOROTHIAZIDE\LISINOPRIL
     Dosage: UNK
  10. BACTRIM [Suspect]
     Active Substance: SULFAMETHOXAZOLE\TRIMETHOPRIM
     Indication: SERRATIA INFECTION
     Dosage: 2 DF, 1X/DAY
     Route: 048
     Dates: start: 20170619, end: 20170626

REACTIONS (5)
  - Eosinophilia [Recovering/Resolving]
  - Hepatic enzyme increased [Recovering/Resolving]
  - Rash pustular [Recovering/Resolving]
  - Hyperleukocytosis [Recovering/Resolving]
  - Pyrexia [Recovering/Resolving]

NARRATIVE: CASE EVENT DATE: 20170626
